FAERS Safety Report 7742736-0 (Version None)
Quarter: 2011Q3

REPORT INFORMATION
  Report Type: 
  Country: None (occurrence: None)
  Receive Date: 20110912
  Receipt Date: 20110830
  Transmission Date: 20111222
  Serious: No
  Sender: FDA-Public Use
  Company Number: SE-NOVOPROD-328962

PATIENT

DRUGS (3)
  1. GLUCAGEN [Suspect]
     Indication: PRODUCT USED FOR UNKNOWN INDICATION
     Dosage: UNK
     Route: 065
     Dates: start: 20110413, end: 20110413
  2. MADOPARK [Concomitant]
     Dosage: TABLETS 100 MG/25 MG
  3. CITALOPRAM [Concomitant]

REACTIONS (3)
  - ABDOMINAL PAIN [None]
  - HYPOAESTHESIA [None]
  - NAUSEA [None]
